FAERS Safety Report 25771415 (Version 1)
Quarter: 2025Q3

REPORT INFORMATION
  Report Type: Spontaneous
  Country: US (occurrence: US)
  Receive Date: 20250908
  Receipt Date: 20250908
  Transmission Date: 20251021
  Serious: No
  Sender: DOMPE FARMACEUTICI
  Company Number: US-FARMAPROD-202504-1322

PATIENT
  Sex: Female

DRUGS (21)
  1. OXERVATE [Suspect]
     Active Substance: CENEGERMIN-BKBJ
     Indication: Neurotrophic keratopathy
     Route: 047
     Dates: start: 20250313
  2. SUCRALFATE [Concomitant]
     Active Substance: SUCRALFATE
  3. ROSUVASTATIN CALCIUM [Concomitant]
     Active Substance: ROSUVASTATIN CALCIUM
  4. PREDNISOLONE ACETATE [Concomitant]
     Active Substance: PREDNISOLONE ACETATE
  5. POTASSIUM CHLORIDE [Concomitant]
     Active Substance: POTASSIUM CHLORIDE
  6. PAROXETINE HYDROCHLORIDE [Concomitant]
     Active Substance: PAROXETINE HYDROCHLORIDE
  7. OMEPRAZOLE [Concomitant]
     Active Substance: OMEPRAZOLE
  8. NITROGLYCERIN [Concomitant]
     Active Substance: NITROGLYCERIN
  9. METOPROLOL TARTRATE [Concomitant]
     Active Substance: METOPROLOL TARTRATE
  10. FLAXSEED [Concomitant]
     Active Substance: FLAX SEED
  11. INSULIN GLARGINE [Concomitant]
     Active Substance: INSULIN GLARGINE
  12. HYDROXYZINE HYDROCHLORIDE [Concomitant]
     Active Substance: HYDROXYZINE HYDROCHLORIDE
  13. FERROUS SULFATE [Concomitant]
     Active Substance: FERROUS SULFATE
  14. FAMCICLOVIR [Concomitant]
     Active Substance: FAMCICLOVIR
  15. DILTIAZEM [Concomitant]
     Active Substance: DILTIAZEM
  16. DICLOFENAC SODIUM [Concomitant]
     Active Substance: DICLOFENAC SODIUM
  17. VITAMIN D2 [Concomitant]
     Active Substance: ERGOCALCIFEROL
  18. BUMETANIDE [Concomitant]
     Active Substance: BUMETANIDE
  19. B COMPLEX [BIOTIN;CALCIUM PANTOTHENATE;CYANOCOBALAMIN;FOLIC ACID;NICOT [Concomitant]
  20. AZITHROMYCIN [Concomitant]
     Active Substance: AZITHROMYCIN
  21. TYLENOL [Concomitant]
     Active Substance: ACETAMINOPHEN

REACTIONS (2)
  - Eye infection [Unknown]
  - Blepharorrhaphy [Unknown]
